FAERS Safety Report 18329624 (Version 1)
Quarter: 2020Q3

REPORT INFORMATION
  Report Type: Spontaneous
  Country: US (occurrence: US)
  Receive Date: 20200930
  Receipt Date: 20200930
  Transmission Date: 20201103
  Serious: Yes (Life-Threatening, Hospitalization, Disabling, Other)
  Sender: FDA-Public Use
  Company Number: None

PATIENT
  Age: 70 Year
  Sex: Female
  Weight: 133.81 kg

DRUGS (3)
  1. ASPIRIN 81 MG [Concomitant]
     Active Substance: ASPIRIN
  2. IV METHYLPREDNISOLONE [Suspect]
     Active Substance: METHYLPREDNISOLONE
  3. CPAP [Concomitant]
     Active Substance: DEVICE

REACTIONS (3)
  - Drug hypersensitivity [None]
  - Shock [None]
  - Delirium [None]

NARRATIVE: CASE EVENT DATE: 20200922
